FAERS Safety Report 6947475-1 (Version None)
Quarter: 2010Q3

REPORT INFORMATION
  Report Type: 
  Country: None (occurrence: None)
  Receive Date: 20100825
  Receipt Date: 20100816
  Transmission Date: 20110219
  Serious: Yes (Other)
  Sender: FDA-Public Use
  Company Number: 2009US004181

PATIENT
  Age: 90 Year
  Sex: Female

DRUGS (3)
  1. VESICARE [Suspect]
     Indication: HYPERTONIC BLADDER
     Dosage: 5 MG, UID/QD, ORAL
     Route: 048
     Dates: end: 20090923
  2. DETROL [Suspect]
     Dosage: 5 MG, UID/QD, ORAL
     Route: 048
     Dates: start: 20090501, end: 20090501
  3. FESOTERODINE [Suspect]
     Indication: HYPERTONIC BLADDER
     Dosage: 8 MG, UID/QD, ORAL; 4 MG, UID/QD, ORAL
     Route: 048
     Dates: start: 20090601, end: 20090601

REACTIONS (9)
  - CONSTIPATION [None]
  - DRUG INEFFECTIVE [None]
  - GAIT DISTURBANCE [None]
  - OEDEMA MOUTH [None]
  - PHARYNGEAL OEDEMA [None]
  - SWOLLEN TONGUE [None]
  - TOOTH LOSS [None]
  - VISION BLURRED [None]
  - WALKING AID USER [None]
